FAERS Safety Report 6092969-7 (Version None)
Quarter: 2009Q1

REPORT INFORMATION
  Report Type: 
  Country: None (occurrence: None)
  Receive Date: 20090224
  Receipt Date: 20090209
  Transmission Date: 20090719
  Serious: Yes (Hospitalization)
  Sender: FDA-Public Use
  Company Number: 1000003874

PATIENT
  Age: 56 Year
  Sex: Female

DRUGS (2)
  1. ARMOUR THYROID (THYROID) (6 GRAIN) [Suspect]
     Dosage: 6 GRAINS DAILY (228 UG T4 AND 54 UG T3) (1 IN 1 D); (1 IN 1 D)
  2. IODINE SUPPLEMENTS [Concomitant]

REACTIONS (14)
  - ATRIAL FIBRILLATION [None]
  - BLOOD THYROID STIMULATING HORMONE DECREASED [None]
  - CARDIOMYOPATHY [None]
  - DRUG TOXICITY [None]
  - DYSPNOEA [None]
  - EJECTION FRACTION DECREASED [None]
  - INCORRECT DOSE ADMINISTERED [None]
  - LEFT VENTRICULAR DYSFUNCTION [None]
  - OEDEMA PERIPHERAL [None]
  - OVERDOSE [None]
  - PALPITATIONS [None]
  - PULMONARY OEDEMA [None]
  - SELF-MEDICATION [None]
  - THYROXINE INCREASED [None]
